FAERS Safety Report 4622522-0 (Version None)
Quarter: 2005Q1

REPORT INFORMATION
  Report Type: 
  Country: None (occurrence: None)
  Receive Date: 20050330
  Receipt Date: 20050316
  Transmission Date: 20050727
  Serious: Yes (Hospitalization)
  Sender: FDA-Public Use
  Company Number: JP-ROCHE-399549

PATIENT
  Age: 90 Year
  Sex: Female

DRUGS (3)
  1. TAMIFLU [Suspect]
     Route: 048
     Dates: start: 20050310, end: 20050313
  2. CARBOCISTEINE [Concomitant]
     Indication: DRUG USE FOR UNKNOWN INDICATION
     Route: 048
  3. ROCEPHIN [Concomitant]
     Indication: DRUG USE FOR UNKNOWN INDICATION
     Dosage: THE FIRST THERAPY WAS 10-14 MAR 2005. THE SECOND THERAPY STARTED ON 16 MAR 2005. SAME DOSAGE REGIME+
     Route: 041
     Dates: start: 20050310

REACTIONS (2)
  - DELIRIUM [None]
  - EXCITABILITY [None]
